FAERS Safety Report 4668194-0 (Version None)
Quarter: 2005Q2

REPORT INFORMATION
  Report Type: 
  Country: None (occurrence: None)
  Receive Date: 20050523
  Receipt Date: 20050116
  Transmission Date: 20051028
  Serious: Yes (Hospitalization, Other)
  Sender: FDA-Public Use
  Company Number: PHEH2005US01228

PATIENT
  Sex: Female

DRUGS (2)
  1. ZOMETA [Suspect]
     Dosage: 4 MG, UNK
     Route: 042
     Dates: start: 20000101
  2. AROMASIN [Concomitant]
     Dosage: 25 G, QD

REACTIONS (3)
  - BONE DISORDER [None]
  - ORAL SURGERY [None]
  - OSTEONECROSIS [None]
